FAERS Safety Report 6279925-0 (Version None)
Quarter: 2009Q3

REPORT INFORMATION
  Report Type: 
  Country: None (occurrence: None)
  Receive Date: 20090723
  Receipt Date: 20090713
  Transmission Date: 20100115
  Serious: Yes (Hospitalization)
  Sender: FDA-Public Use
  Company Number: NO-SANOFI-SYNTHELABO-F01200900418

PATIENT
  Sex: Female

DRUGS (14)
  1. DIURAL [Concomitant]
     Dosage: UNK
     Route: 065
     Dates: start: 20090406
  2. SOMAC [Concomitant]
     Dosage: UNK
     Route: 065
     Dates: start: 20090406
  3. FRAGMIN [Concomitant]
     Dosage: UNK
     Route: 065
     Dates: start: 20090331
  4. ACETAMINOPHEN [Concomitant]
     Dosage: UNK
     Route: 065
     Dates: start: 20081002
  5. OMEGA [Concomitant]
     Dosage: UNK
     Route: 065
  6. MULTI VITAMIN NOS [Concomitant]
     Dosage: UNK
     Route: 065
  7. DUPHALAC [Concomitant]
     Dosage: UNK
     Route: 065
     Dates: start: 20090114, end: 20090331
  8. MEDROL [Concomitant]
     Dosage: UNK
     Route: 065
     Dates: start: 20090205
  9. OXYNORM [Concomitant]
     Dosage: UNK
     Route: 065
     Dates: start: 20090205
  10. OXYCONTIN [Concomitant]
     Dosage: UNK
     Route: 065
     Dates: start: 20090205, end: 20090406
  11. FLUOROURACIL [Suspect]
     Indication: COLON CANCER
     Dosage: UNK
     Route: 065
  12. OXALIPLATIN [Suspect]
     Indication: COLON CANCER
     Dosage: UNK
     Route: 042
  13. MORPHINE [Concomitant]
     Dosage: UNK
     Route: 065
     Dates: start: 20090406
  14. BEVACIZUMAB [Suspect]
     Indication: COLON CANCER
     Route: 042
     Dates: start: 20090209, end: 20090209

REACTIONS (3)
  - FEBRILE NEUTROPENIA [None]
  - FEMUR FRACTURE [None]
  - THROMBOSIS [None]
